FAERS Safety Report 7009343-9 (Version None)
Quarter: 2010Q3

REPORT INFORMATION
  Report Type: 
  Country: None (occurrence: None)
  Receive Date: 20100921
  Receipt Date: 20100915
  Transmission Date: 20110219
  Serious: Yes (Hospitalization, Other)
  Sender: FDA-Public Use
  Company Number: CAP10000324

PATIENT
  Age: 67 Year
  Sex: Female

DRUGS (3)
  1. ACTONEL [Suspect]
     Indication: OSTEOPOROSIS
     Dosage: 35 MG,1 /WEEK, ORAL
     Route: 048
     Dates: start: 20040101
  2. RAMIPRIL [Concomitant]
  3. NOVO-HYDRAZIDE (HYDROCHLOROTHIAZIDE) [Concomitant]

REACTIONS (1)
  - COLON CANCER [None]
